FAERS Safety Report 4368262-7 (Version None)
Quarter: 2004Q2

REPORT INFORMATION
  Report Type: 
  Country: None (occurrence: None)
  Receive Date: 20040527
  Receipt Date: 20040506
  Transmission Date: 20050107
  Serious: No
  Sender: FDA-Public Use
  Company Number: A04200400380

PATIENT
  Age: 37 Year
  Sex: Male

DRUGS (5)
  1. ARIXTRA [Suspect]
     Indication: HIP ARTHROPLASTY
     Dosage: 2.5 MG OD
     Route: 058
     Dates: start: 20040401
  2. ARIXTRA [Suspect]
     Indication: INJURY
     Dosage: 2.5 MG OD
     Route: 058
     Dates: start: 20040401
  3. ARIXTRA [Suspect]
     Indication: THROMBOSIS PROPHYLAXIS
     Dosage: 2.5 MG OD
     Route: 058
     Dates: start: 20040401
  4. NOVALDIN INJ [Concomitant]
  5. ROCEPHIN [Concomitant]

REACTIONS (2)
  - HAEMOGLOBIN DECREASED [None]
  - SHOCK [None]
